FAERS Safety Report 9478416 (Version 2)
Quarter: 2013Q3

REPORT INFORMATION
  Report Type: Report from Study
  Country: US (occurrence: US)
  Receive Date: 20130827
  Receipt Date: 20130909
  Transmission Date: 20140515
  Serious: Yes (Hospitalization)
  Sender: FDA-Public Use
  Company Number: US-SANOFI-AVENTIS-2013SA084481

PATIENT
  Age: 66 Year
  Sex: Female
  Weight: 49.89 kg

DRUGS (16)
  1. AUBAGIO [Suspect]
     Indication: MULTIPLE SCLEROSIS
     Route: 048
     Dates: start: 20130516, end: 20130806
  2. MAGNESIUM [Concomitant]
     Indication: MUSCLE SPASMS
     Route: 065
     Dates: start: 20130803, end: 20130806
  3. KLONOPIN [Concomitant]
     Indication: ANXIETY
     Route: 065
     Dates: start: 20130803, end: 20130806
  4. KLONOPIN [Concomitant]
     Indication: MUSCLE SPASMS
     Route: 065
     Dates: start: 20130803, end: 20130806
  5. SOLU-MEDROL [Concomitant]
  6. ADDREALL [Concomitant]
     Route: 065
  7. PAXIL [Concomitant]
     Route: 065
  8. BACLOFEN [Concomitant]
     Route: 065
  9. ZANAFLEX [Concomitant]
     Route: 065
  10. MIRALAX [Concomitant]
     Route: 065
  11. VESICARE [Concomitant]
     Route: 065
  12. CENTRUM SILVER [Concomitant]
  13. CALCIUM [Concomitant]
     Route: 065
  14. COL-RITE STOOL SOFTENER [Concomitant]
  15. ASPIRIN [Concomitant]
     Route: 065
  16. VITAMIN D3 [Concomitant]
     Route: 065

REACTIONS (7)
  - Muscle spasms [Recovered/Resolved]
  - Insomnia [Recovered/Resolved]
  - Fatigue [Recovered/Resolved]
  - Listless [Recovered/Resolved]
  - Flushing [Recovered/Resolved]
  - Burning sensation [Recovered/Resolved]
  - Paraesthesia [Recovered/Resolved]
